FAERS Safety Report 7830477-0 (Version None)
Quarter: 2011Q4

REPORT INFORMATION
  Report Type: 
  Country: None (occurrence: None)
  Receive Date: 20111021
  Receipt Date: 20111012
  Transmission Date: 20120403
  Serious: Yes (Other)
  Sender: FDA-Public Use
  Company Number: US-JNJFOC-20111006309

PATIENT
  Age: 51 Year
  Sex: Male
  Weight: 80.74 kg

DRUGS (3)
  1. IMODIUM MULTI-SYMPTOM RELIEF [Suspect]
     Indication: DIARRHOEA
     Route: 048
  2. IMODIUM MULTI-SYMPTOM RELIEF [Suspect]
     Route: 048
  3. UNKNOWN MEDICATION [Concomitant]
     Route: 065

REACTIONS (1)
  - HAEMATOCHEZIA [None]
